FAERS Safety Report 19611543 (Version 2)
Quarter: 2021Q3

REPORT INFORMATION
  Report Type: Report from Study
  Country: AU (occurrence: AU)
  Receive Date: 20210727
  Receipt Date: 20210804
  Transmission Date: 20211014
  Serious: Yes (Hospitalization)
  Sender: FDA-Public Use
  Company Number: AU-BEH-2021134214

PATIENT
  Age: 69 Year
  Sex: Male

DRUGS (4)
  1. LEFLUNOMIDE. [Concomitant]
     Active Substance: LEFLUNOMIDE
     Dosage: 10 MILLIGRAM, QOD
  2. PREDNISONE. [Concomitant]
     Active Substance: PREDNISONE
     Dosage: 5 MILLIGRAM (AM)
  3. HIZENTRA [Suspect]
     Active Substance: HUMAN IMMUNOGLOBULIN G
     Indication: SECONDARY IMMUNODEFICIENCY
     Dosage: 8 GRAM (40 ML)
     Route: 058
  4. CANDESARTAN. [Concomitant]
     Active Substance: CANDESARTAN
     Dosage: 4 MILLIGRAM (NOCTE)

REACTIONS (4)
  - Pneumothorax [Unknown]
  - Cardiac disorder [Unknown]
  - Anxiety [Unknown]
  - Subcutaneous emphysema [Unknown]

NARRATIVE: CASE EVENT DATE: 20210720
